FAERS Safety Report 4980585-7 (Version None)
Quarter: 2006Q2

REPORT INFORMATION
  Report Type: 
  Country: None (occurrence: None)
  Receive Date: 20060424
  Receipt Date: 20050815
  Transmission Date: 20061013
  Serious: Yes (Hospitalization)
  Sender: FDA-Public Use
  Company Number: US-MERCK-0508USA02639

PATIENT
  Age: 62 Year
  Sex: Female
  Weight: 136 kg

DRUGS (1)
  1. VIOXX [Suspect]
     Indication: MONARTHRITIS
     Route: 048
     Dates: start: 20000101, end: 20021201

REACTIONS (6)
  - ARTHROPATHY [None]
  - BLOOD PRESSURE FLUCTUATION [None]
  - CELLULITIS [None]
  - CHEST PAIN [None]
  - DEEP VEIN THROMBOSIS [None]
  - RENAL FAILURE [None]
